FAERS Safety Report 17089222 (Version 1)
Quarter: 2019Q4

REPORT INFORMATION
  Report Type: Spontaneous
  Country: JP (occurrence: JP)
  Receive Date: 20191128
  Receipt Date: 20191128
  Transmission Date: 20200122
  Serious: Yes (Hospitalization)
  Sender: FDA-Public Use
  Company Number: JP-ASTRAZENECA-2019SF67690

PATIENT
  Age: 62 Year
  Sex: Male
  Weight: 56 kg

DRUGS (2)
  1. LAFUTIDINE [Concomitant]
     Active Substance: LAFUTIDINE
     Route: 048
  2. IMFINZI [Suspect]
     Active Substance: DURVALUMAB
     Indication: NON-SMALL CELL LUNG CANCER
     Route: 041
     Dates: start: 20190619, end: 20190717

REACTIONS (3)
  - Pneumothorax [Recovering/Resolving]
  - Pneumonitis [Recovering/Resolving]
  - Idiopathic interstitial pneumonia [Recovering/Resolving]

NARRATIVE: CASE EVENT DATE: 20190722
